FAERS Safety Report 16859784 (Version 1)
Quarter: 2019Q3

REPORT INFORMATION
  Report Type: Spontaneous
  Country: ES (occurrence: ES)
  Receive Date: 20190923
  Receipt Date: 20190923
  Transmission Date: 20191005
  Serious: Yes (Other)
  Sender: FDA-Public Use
  Company Number: ES-TEVA-2019-ES-1110852

PATIENT
  Age: 8 Month
  Sex: Female
  Weight: 5.8 kg

DRUGS (2)
  1. OMEPRAZOL (2141A) [Suspect]
     Active Substance: OMEPRAZOLE
     Indication: GASTROOESOPHAGEAL REFLUX DISEASE
     Dosage: 4.8 MG EVERY 24 HOURS (1.2 ML OF 2MG / ML SOLUTION EVERY 12 HOURS)/ 0.83 MG.KG/ DAY/ 31 DAYS
     Route: 048
     Dates: start: 20190418, end: 20190518
  2. MINOXIDIL (782A) [Suspect]
     Active Substance: MINOXIDIL
     Dosage: 31 DAYS
     Route: 048
     Dates: start: 20190418, end: 20190518

REACTIONS (2)
  - Hypertrichosis [Recovering/Resolving]
  - Product formulation issue [Recovered/Resolved]

NARRATIVE: CASE EVENT DATE: 20190418
